FAERS Safety Report 23769750 (Version 1)
Quarter: 2024Q2

REPORT INFORMATION
  Report Type: Spontaneous
  Country: FR (occurrence: FR)
  Receive Date: 20240422
  Receipt Date: 20240422
  Transmission Date: 20240715
  Serious: Yes (Life-Threatening, Hospitalization, Other)
  Sender: FDA-Public Use
  Company Number: FR-SANOFI-01950383

PATIENT
  Age: 62 Year
  Sex: Female
  Weight: 55 kg

DRUGS (1)
  1. LOVENOX [Suspect]
     Active Substance: ENOXAPARIN SODIUM
     Dosage: 1 DF, QD
     Route: 065
     Dates: start: 20240124, end: 20240212

REACTIONS (9)
  - Gastric haemorrhage [Unknown]
  - Haematemesis [Unknown]
  - Shock haemorrhagic [Unknown]
  - Anaemia [Unknown]
  - Nausea [Unknown]
  - Dizziness [Unknown]
  - Rectal haemorrhage [Unknown]
  - Loss of consciousness [Unknown]
  - Blood pressure abnormal [Unknown]

NARRATIVE: CASE EVENT DATE: 20240211
